FAERS Safety Report 8008413-6 (Version None)
Quarter: 2011Q4

REPORT INFORMATION
  Report Type: 
  Country: None (occurrence: None)
  Receive Date: 20111227
  Receipt Date: 20111220
  Transmission Date: 20120403
  Serious: Yes (Death, Hospitalization, Other)
  Sender: FDA-Public Use
  Company Number: US-CELGENEUS-163-21880-11111138

PATIENT
  Sex: Female

DRUGS (10)
  1. CYCLOBENZAPRINE [Concomitant]
     Dosage: 10 MILLIGRAM
     Route: 048
  2. SIMAVASTATIN [Concomitant]
     Dosage: 40 MILLIGRAM
     Route: 048
  3. COREG [Concomitant]
     Dosage: 125 MILLIGRAM
     Route: 048
  4. VESICARE [Concomitant]
     Dosage: 10 MILLIGRAM
     Route: 048
  5. REVLIMID [Suspect]
     Indication: MULTIPLE MYELOMA
     Dosage: 25 MILLIGRAM
     Route: 048
     Dates: start: 20110101, end: 20111101
  6. TEKTURNA [Concomitant]
     Dosage: 150 MILLIGRAM
     Route: 048
  7. COUMADIN [Concomitant]
     Dosage: 5 MILLIGRAM
     Route: 048
  8. ARIXTRA [Concomitant]
     Dosage: 5 MILLIGRAM
     Route: 058
  9. ZOVIRAX [Concomitant]
     Dosage: 200 MILLIGRAM
     Route: 048
  10. DEXAMETHASONE [Concomitant]
     Dosage: 4 MILLIGRAM
     Route: 048

REACTIONS (2)
  - METABOLIC ENCEPHALOPATHY [None]
  - STAPHYLOCOCCAL SEPSIS [None]
